FAERS Safety Report 16000454 (Version 1)
Quarter: 2019Q1

REPORT INFORMATION
  Report Type: Spontaneous
  Country: FR (occurrence: FR)
  Receive Date: 20190225
  Receipt Date: 20190225
  Transmission Date: 20190418
  Serious: Yes (Death, Other)
  Sender: FDA-Public Use
  Company Number: FR-MYLANLABS-2019M1015428

PATIENT
  Age: 57 Year
  Sex: Female

DRUGS (8)
  1. RITUXIMAB. [Suspect]
     Active Substance: RITUXIMAB
     Indication: TRANSPLANT REJECTION
     Dosage: 375 MG/M2, 2 INJECTIONS
  2. PRIVIGEN [Suspect]
     Active Substance: HUMAN IMMUNOGLOBULIN G
     Indication: TRANSPLANT REJECTION
     Dosage: 2 G/KG, TOTAL
     Route: 042
  3. THYMOGLOBULINE [Suspect]
     Active Substance: LAPINE T-LYMPHOCYTE IMMUNE GLOBULIN
     Indication: TRANSPLANT REJECTION
     Dosage: UNK
  4. DOBUTAMINE [Concomitant]
     Active Substance: DOBUTAMINE\DOBUTAMINE HYDROCHLORIDE
     Indication: CARDIOGENIC SHOCK
     Dosage: INFUSION
     Route: 042
  5. MYCOPHENOLATE MOFETIL. [Suspect]
     Active Substance: MYCOPHENOLATE MOFETIL
     Indication: IMMUNOSUPPRESSANT DRUG THERAPY
     Dosage: 1000 MG, QD
  6. METHYLPREDNISOLONE. [Suspect]
     Active Substance: METHYLPREDNISOLONE
     Indication: TRANSPLANT REJECTION
     Dosage: 500-1000 MG PER DAY DURING 3 DAYS INFUSION
     Route: 042
  7. CYCLOSPORINE. [Suspect]
     Active Substance: CYCLOSPORINE
     Indication: IMMUNOSUPPRESSANT DRUG THERAPY
     Dosage: UNK
  8. ACETYLSALICYLIC ACID [Concomitant]
     Active Substance: ASPIRIN
     Dosage: LOW DOSE

REACTIONS (1)
  - Septic shock [Fatal]
